FAERS Safety Report 5570384-X (Version None)
Quarter: 2007Q4

REPORT INFORMATION
  Report Type: 
  Country: None (occurrence: None)
  Receive Date: 20071221
  Receipt Date: 20071213
  Transmission Date: 20080405
  Serious: Yes (Hospitalization)
  Sender: FDA-Public Use
  Company Number: US-WYE-H01632507

PATIENT
  Age: 51 Year
  Sex: Male

DRUGS (2)
  1. TORISEL [Suspect]
     Indication: CHRONIC MYELOID LEUKAEMIA
     Route: 042
     Dates: start: 20071023, end: 20071106
  2. IMATINIB MESYLATE [Suspect]
     Route: 048
     Dates: start: 20071023, end: 20071111

REACTIONS (6)
  - CARDIAC FAILURE CONGESTIVE [None]
  - FACE OEDEMA [None]
  - LEFT VENTRICULAR DYSFUNCTION [None]
  - PERICARDIAL EFFUSION [None]
  - PLEURAL EFFUSION [None]
  - PYREXIA [None]
